FAERS Safety Report 8596415-0 (Version None)
Quarter: 2012Q3

REPORT INFORMATION
  Report Type: 
  Country: None (occurrence: None)
  Receive Date: 20120815
  Receipt Date: 20070722
  Transmission Date: 20120928
  Serious: Yes (Other)
  Sender: FDA-Public Use
  Company Number: CO-PFIZER INC-2012193856

PATIENT
  Age: 61 Year
  Sex: Female

DRUGS (6)
  1. ACETYLSALICYLIC ACID [Concomitant]
     Dosage: 100 MG, 1X/DAY
  2. AMLODIPINE [Concomitant]
     Dosage: 5 MG, 1X/DAY
  3. GLIBENCLAMIDE [Concomitant]
     Dosage: 5 MG, 1X/DAY
  4. LIPITOR [Suspect]
     Indication: DYSLIPIDAEMIA
     Dosage: 10 MG, 1X/DAY
  5. OLMESARTAN MEDOXOMIL [Suspect]
     Indication: HYPERTENSION
     Dosage: 20 MG, 1X/DAY
  6. GLIBENCLAMIDE [Concomitant]
     Dosage: 5 MG, 2X/DAY

REACTIONS (4)
  - EXERCISE LACK OF [None]
  - RENAL FAILURE CHRONIC [None]
  - HAEMATURIA [None]
  - LEUKOCYTURIA [None]
